FAERS Safety Report 4638678-X (Version None)
Quarter: 2005Q2

REPORT INFORMATION
  Report Type: 
  Country: None (occurrence: None)
  Receive Date: 20050418
  Receipt Date: 20050418
  Transmission Date: 20051028
  Serious: Yes (Other)
  Sender: FDA-Public Use
  Company Number: None

PATIENT

DRUGS (2)
  1. TUBERCULIN , PPD  5 TU/0.1 ML [Suspect]
     Indication: TUBERCULIN TEST
     Dosage: 0.1 ML    INTRADERMAL
     Route: 023
     Dates: start: 20040414
  2. TUBERCULIN , PPD  5 TU/0.1 ML [Suspect]
     Indication: TUBERCULIN TEST
     Dosage: 0.1 ML    INTRADERMAL
     Route: 023
     Dates: start: 20050406

REACTIONS (2)
  - INJECTION SITE ERYTHEMA [None]
  - PHARMACEUTICAL PRODUCT COMPLAINT [None]
